FAERS Safety Report 8666239 (Version 4)
Quarter: 2012Q4

REPORT INFORMATION
  Report Type: 
  Country: CA (occurrence: CA)
  Receive Date: 20120716
  Receipt Date: 20120927
  Transmission Date: 20130627
  Serious: Yes (Other)
  Sender: FDA-Public Use
  Company Number: PHHY2012CA060485

PATIENT
  Age: 49 Year
  Sex: Female

DRUGS (6)
  1. GILENYA [Suspect]
     Indication: RELAPSING-REMITTING MULTIPLE SCLEROSIS
     Dosage: 0.5 mg, daily
     Route: 048
     Dates: start: 20120709
  2. VITAMIN B12 [Concomitant]
     Dosage: UNK UKN, UNK
  3. VITAMIN D [Concomitant]
     Dosage: UNK UKN, UNK
  4. FIORINAL [Concomitant]
     Dosage: UNK UKN, UNK
  5. TYLENOL [Concomitant]
     Dosage: UNK UKN, UNK
  6. MOTRIN [Concomitant]
     Dosage: UNK UKN, UNK

REACTIONS (7)
  - Blood pressure decreased [Unknown]
  - Somnolence [Unknown]
  - Fatigue [Not Recovered/Not Resolved]
  - Nausea [Recovered/Resolved]
  - Abdominal discomfort [Recovered/Resolved]
  - Heart rate decreased [Unknown]
  - Back pain [Not Recovered/Not Resolved]
